FAERS Safety Report 24144440 (Version 2)
Quarter: 2024Q4

REPORT INFORMATION
  Report Type: Other
  Country: IN (occurrence: IN)
  Receive Date: 20240728
  Receipt Date: 20241125
  Transmission Date: 20250114
  Serious: Yes (Other)
  Sender: DEXCEL
  Company Number: IN-DEXPHARM-2024-2471

PATIENT
  Age: 20 Year
  Sex: Male

DRUGS (2)
  1. HEMADY [Interacting]
     Active Substance: DEXAMETHASONE
     Dosage: DEXAMETHASONE (0.5 MG TWICE DAILY)
  2. CYPROHEPTADINE [Interacting]
     Active Substance: CYPROHEPTADINE
     Dosage: CH (8 MG IN TWO DIVIDED DOSES)

REACTIONS (4)
  - Drug abuse [Recovered/Resolved]
  - Suicide attempt [Recovered/Resolved]
  - Obsessive-compulsive symptom [Recovered/Resolved]
  - Drug interaction [Recovered/Resolved]
